FAERS Safety Report 4798024-8 (Version None)
Quarter: 2005Q3

REPORT INFORMATION
  Report Type: 
  Country: None (occurrence: None)
  Receive Date: 20050929
  Receipt Date: 20050817
  Transmission Date: 20060218
  Serious: No
  Sender: FDA-Public Use
  Company Number: 05P-163-0308425

PATIENT
  Age: 64 Year
  Sex: Female
  Weight: 88.4514 kg

DRUGS (11)
  1. HUMIRA                   (ADALIMUMAB) [Suspect]
     Indication: RHEUMATOID ARTHRITIS
     Dosage: 40 MG, 1 IN 2 WK, SUBCUTANEOUS
     Route: 058
     Dates: start: 20050501
  2. OMEPRAZOLE [Concomitant]
  3. ACETAMINOPHEN W/ CODEINE [Concomitant]
  4. HYDROXYCHLOROQUINE PHOSPHATE [Concomitant]
  5. TRAVITAN [Concomitant]
  6. ESTROGENS CONJUGATED [Concomitant]
  7. NORTRIPTYLINE HCL [Concomitant]
  8. PAROXETINE HYDROCHLORIDE [Concomitant]
  9. PREDNISONE [Concomitant]
  10. ALPRAZOLAM [Concomitant]
  11. RANITIDINE HYDROCHLORIDE [Concomitant]

REACTIONS (1)
  - HYPERKERATOSIS [None]
